FAERS Safety Report 9247444 (Version 2)
Quarter: 2013Q2

REPORT INFORMATION
  Report Type: Spontaneous
  Country: US (occurrence: US)
  Receive Date: 20130423
  Receipt Date: 20130423
  Transmission Date: 20140414
  Serious: No
  Sender: FDA-Public Use
  Company Number: US-MYLANLABS-2013S1001165

PATIENT
  Age: 72 Year
  Sex: Female

DRUGS (1)
  1. LORAZEPAM TABLETS, USP [Suspect]
     Indication: ANXIETY
     Route: 048
     Dates: start: 20130112, end: 20130113

REACTIONS (4)
  - Nervousness [Recovered/Resolved]
  - Reaction to drug excipients [Recovered/Resolved]
  - Insomnia [Recovered/Resolved]
  - Chest discomfort [Recovered/Resolved]
